FAERS Safety Report 8126196-6 (Version None)
Quarter: 2012Q1

REPORT INFORMATION
  Report Type: 
  Country: None (occurrence: None)
  Receive Date: 20120209
  Receipt Date: 20120203
  Transmission Date: 20120608
  Serious: Yes (Hospitalization)
  Sender: FDA-Public Use
  Company Number: PHHY2012JP007760

PATIENT
  Age: 66 Year
  Sex: Male

DRUGS (1)
  1. VOLTAREN [Suspect]
     Indication: BACK PAIN
     Dosage: 50 MG, PRN
     Route: 054
     Dates: start: 20110224

REACTIONS (1)
  - ANAPHYLACTIC SHOCK [None]
